FAERS Safety Report 8275303-3 (Version None)
Quarter: 2012Q2

REPORT INFORMATION
  Report Type: 
  Country: None (occurrence: None)
  Receive Date: 20120411
  Receipt Date: 20120328
  Transmission Date: 20120825
  Serious: Yes (Hospitalization)
  Sender: FDA-Public Use
  Company Number: GB-ROCHE-1032322

PATIENT
  Sex: Female
  Weight: 47 kg

DRUGS (4)
  1. AZULFIDINE [Concomitant]
  2. METHOTREXATE [Concomitant]
  3. PREDNISOLONE [Concomitant]
  4. MABTHERA [Suspect]
     Indication: RHEUMATOID ARTHRITIS
     Dosage: LAST DOSE PRIOR TO SAE ON 23 JANUARY 2011, ROUTE, FORM AND FREQUENCY: NOT REPORTED
     Dates: start: 20110109

REACTIONS (4)
  - CONSTIPATION [None]
  - DYSPNOEA [None]
  - INFECTION [None]
  - PULMONARY OEDEMA [None]
